FAERS Safety Report 16212372 (Version 3)
Quarter: 2019Q2

REPORT INFORMATION
  Report Type: Spontaneous
  Country: US (occurrence: US)
  Receive Date: 20190418
  Receipt Date: 20190529
  Transmission Date: 20190711
  Serious: No
  Sender: FDA-Public Use
  Company Number: US-PFIZER INC-2019027346

PATIENT
  Age: 44 Year
  Sex: Male
  Weight: 90.72 kg

DRUGS (8)
  1. LYRICA [Suspect]
     Active Substance: PREGABALIN
     Indication: COMPLEX REGIONAL PAIN SYNDROME
  2. ALPRAZOLAM. [Concomitant]
     Active Substance: ALPRAZOLAM
     Indication: STRESS
     Dosage: 1 DF, 3X/DAY
  3. LYRICA [Suspect]
     Active Substance: PREGABALIN
     Indication: BACK DISORDER
     Dosage: 100 MG, 4X/DAY
     Route: 048
  4. ALPRAZOLAM. [Concomitant]
     Active Substance: ALPRAZOLAM
     Indication: ANXIETY
     Dosage: UNK, 4X/DAY [0.25 (4 TIMES A DAY)]
     Dates: start: 2016
  5. AMITRIPTYLINE [Concomitant]
     Active Substance: AMITRIPTYLINE
     Indication: NERVE BLOCK
     Dosage: 50 MG, UNK (TWO TABS)
     Route: 048
  6. LYRICA [Suspect]
     Active Substance: PREGABALIN
     Indication: SPINAL CORD INJURY
     Dosage: UNK (TAKE 1 CAPSULE BY ORAL ROUTE 3 TIMES PER DAY 4 TIMES/ DAY 90 DAYS)
  7. AMITRIPTYLINE [Concomitant]
     Active Substance: AMITRIPTYLINE
     Dosage: 25 MG, 2X/DAY
     Dates: start: 2016
  8. LYRICA [Suspect]
     Active Substance: PREGABALIN
     Indication: NEURALGIA
     Dosage: 100 MG, 4X/DAY
     Route: 048
     Dates: start: 201601

REACTIONS (5)
  - Product use issue [Unknown]
  - Off label use [Unknown]
  - Malaise [Unknown]
  - Withdrawal syndrome [Not Recovered/Not Resolved]
  - Product prescribing error [Unknown]

NARRATIVE: CASE EVENT DATE: 201601
